FAERS Safety Report 22252153 (Version 3)
Quarter: 2023Q2

REPORT INFORMATION
  Report Type: Report from Study
  Country: GB (occurrence: GB)
  Receive Date: 20230425
  Receipt Date: 20230505
  Transmission Date: 20230721
  Serious: No
  Sender: FDA-Public Use
  Company Number: GB-APIL-2311076US

PATIENT
  Sex: Female

DRUGS (2)
  1. BOTULINUM TOXIN TYPE A [Suspect]
     Active Substance: BOTULINUM TOXIN TYPE A
     Indication: Skin wrinkling
     Dosage: UNK, SINGLE
     Route: 065
  2. BOTULINUM TOXIN TYPE A [Suspect]
     Active Substance: BOTULINUM TOXIN TYPE A
     Indication: Skin wrinkling
     Dosage: UNK, SINGLE
     Route: 065

REACTIONS (5)
  - Mental impairment [Unknown]
  - Facial paralysis [Unknown]
  - Cerebral disorder [Unknown]
  - Emotional disorder [Unknown]
  - Facial paresis [Unknown]

NARRATIVE: CASE EVENT DATE: 20230101
